FAERS Safety Report 17143280 (Version 2)
Quarter: 2020Q1

REPORT INFORMATION
  Report Type: Spontaneous
  Country: IT (occurrence: IT)
  Receive Date: 20191212
  Receipt Date: 20200303
  Transmission Date: 20200409
  Serious: Yes (Hospitalization, Other)
  Sender: FDA-Public Use
  Company Number: IT-MYLANLABS-2019M1120336

PATIENT
  Sex: Male

DRUGS (2)
  1. SILDENAFIL. [Suspect]
     Active Substance: SILDENAFIL
     Dosage: Q25D, DOSE INCREASED OVER 48 HOUR TO 2 MG/KG FOR FOUR TIMES A DAY
     Route: 048
  2. SILDENAFIL. [Suspect]
     Active Substance: SILDENAFIL
     Indication: PULMONARY HYPERTENSION
     Dosage: Q25D
     Route: 048

REACTIONS (3)
  - Product use issue [Unknown]
  - Rectal haemorrhage [Recovered/Resolved]
  - Off label use [Unknown]
